FAERS Safety Report 9435643 (Version 1)
Quarter: 2013Q3

REPORT INFORMATION
  Report Type: Spontaneous
  Country: GB (occurrence: GB)
  Receive Date: 20130801
  Receipt Date: 20130801
  Transmission Date: 20140515
  Serious: Yes (Other)
  Sender: FDA-Public Use
  Company Number: GB-WATSON-2013-13498

PATIENT
  Age: 70 Year
  Sex: Female

DRUGS (9)
  1. DOXAZOSIN MESYLATE (UNKNOWN) [Suspect]
     Indication: BLOOD PRESSURE INCREASED
     Dosage: 6 MG, UNKNOWN
     Route: 048
     Dates: end: 2013
  2. DOXAZOSIN MESYLATE (UNKNOWN) [Suspect]
     Dosage: 4 MG, UNKNOWN
     Route: 048
     Dates: start: 2000
  3. QUININE SULPHATE [Concomitant]
     Indication: PRODUCT USED FOR UNKNOWN INDICATION
     Dosage: UNK, UNKNOWN
     Route: 065
  4. BENDROFLUMETHIAZIDE [Concomitant]
     Indication: PRODUCT USED FOR UNKNOWN INDICATION
     Dosage: UNK, UNKNOWN
     Route: 065
  5. PARACETAMOL [Concomitant]
     Indication: PRODUCT USED FOR UNKNOWN INDICATION
     Dosage: UNK, UNKNOWN
     Route: 065
  6. OMEPRAZOLE [Concomitant]
     Indication: PRODUCT USED FOR UNKNOWN INDICATION
     Dosage: UNK, UNKNOWN
     Route: 065
  7. EQUISETUM ARVENSE [Concomitant]
     Indication: PRODUCT USED FOR UNKNOWN INDICATION
     Dosage: UNK, UNKNOWN
     Route: 065
  8. KELP                               /01214901/ [Concomitant]
     Indication: PRODUCT USED FOR UNKNOWN INDICATION
     Dosage: UNK, UNKNOWN
     Route: 065
  9. SOLIDAGO                           /01517409/ [Concomitant]
     Indication: PRODUCT USED FOR UNKNOWN INDICATION
     Dosage: UNK, UNKNOWN
     Route: 065

REACTIONS (9)
  - Urinary incontinence [Unknown]
  - Movement disorder [Unknown]
  - Alopecia [Unknown]
  - Confusional state [Unknown]
  - Gait disturbance [Unknown]
  - Memory impairment [Unknown]
  - Faecal incontinence [Unknown]
  - Reaction to drug excipients [Unknown]
  - Feeling abnormal [Unknown]
